FAERS Safety Report 13009818 (Version 1)
Quarter: 2016Q4

REPORT INFORMATION
  Report Type: Report from Study
  Country: CA (occurrence: CA)
  Receive Date: 20161208
  Receipt Date: 20161208
  Transmission Date: 20170207
  Serious: Yes (Other)
  Sender: FDA-Public Use
  Company Number: CA-AMGEN-CANSL2016148237

PATIENT
  Age: 87 Year
  Sex: Female
  Weight: 44.9 kg

DRUGS (5)
  1. VITAMIN D [Concomitant]
     Active Substance: CHOLECALCIFEROL
  2. VITAMIN C [Concomitant]
     Active Substance: ASCORBIC ACID
  3. PROLIA [Suspect]
     Active Substance: DENOSUMAB
     Indication: SENILE OSTEOPOROSIS
     Dosage: 60 MG/ML, Q6MO
     Route: 058
     Dates: start: 20150505, end: 20160610
  4. VITAMIN E [Concomitant]
     Active Substance: .ALPHA.-TOCOPHEROL
  5. GARLIC. [Concomitant]
     Active Substance: GARLIC

REACTIONS (6)
  - Device failure [Unknown]
  - Escherichia urinary tract infection [Recovered/Resolved]
  - Toothache [Not Recovered/Not Resolved]
  - Sensitivity of teeth [Unknown]
  - Denture wearer [Unknown]
  - Influenza [Unknown]

NARRATIVE: CASE EVENT DATE: 2015
